FAERS Safety Report 8203354-3 (Version None)
Quarter: 2012Q1

REPORT INFORMATION
  Report Type: 
  Country: None (occurrence: None)
  Receive Date: 20120312
  Receipt Date: 20120210
  Transmission Date: 20120608
  Serious: Yes (Hospitalization, Other)
  Sender: FDA-Public Use
  Company Number: PHHY2012FR018296

PATIENT
  Age: 19 Year
  Sex: Female

DRUGS (1)
  1. OSLIF BREEZHALER [Suspect]
     Indication: ASTHMA
     Dosage: 150 UG, QD

REACTIONS (1)
  - ASTHMATIC CRISIS [None]
